FAERS Safety Report 15267314 (Version 1)
Quarter: 2018Q3

REPORT INFORMATION
  Report Type: Spontaneous
  Country: US (occurrence: US)
  Receive Date: 20180811
  Receipt Date: 20180811
  Transmission Date: 20181010
  Serious: No
  Sender: FDA-Public Use
  Company Number: US-VIFOR (INTERNATIONAL) INC.-VIT-2016-01712

PATIENT
  Age: 73 Year
  Sex: Female

DRUGS (38)
  1. VELTASSA [Suspect]
     Active Substance: PATIROMER
     Indication: ESSENTIAL HYPERTENSION
     Route: 048
     Dates: start: 20160325
  2. RANEXA [Concomitant]
     Active Substance: RANOLAZINE
  3. CARVEDILOL. [Concomitant]
     Active Substance: CARVEDILOL
  4. LEVOTHYROXINE SODIUM. [Concomitant]
     Active Substance: LEVOTHYROXINE SODIUM
  5. BUSPIRONE HYDROCHLORIDE. [Concomitant]
     Active Substance: BUSPIRONE HYDROCHLORIDE
  6. HYDROXYZINE EMBONATE/HYDROXYZINE PAMOATE [Concomitant]
  7. VELTASSA [Suspect]
     Active Substance: PATIROMER
     Indication: HYPERKALAEMIA
     Route: 050
  8. VELTASSA [Suspect]
     Active Substance: PATIROMER
     Indication: CHRONIC KIDNEY DISEASE
     Route: 048
     Dates: start: 20171116
  9. ZOCOR [Concomitant]
     Active Substance: SIMVASTATIN
  10. NITROSTAT [Concomitant]
     Active Substance: NITROGLYCERIN
  11. CALCIUM CARBONATE. [Concomitant]
     Active Substance: CALCIUM CARBONATE
  12. HYDROXYZINE HYDROCHLORIDE. [Concomitant]
     Active Substance: HYDROXYZINE HYDROCHLORIDE
  13. FENOFIBRATE. [Concomitant]
     Active Substance: FENOFIBRATE
  14. OMEPRAZOLE. [Concomitant]
     Active Substance: OMEPRAZOLE
  15. AMOXICILLIN. [Concomitant]
     Active Substance: AMOXICILLIN
  16. MAGNESIUM OXIDE. [Concomitant]
     Active Substance: MAGNESIUM OXIDE
  17. NOVOLIN 70/30 [Concomitant]
     Active Substance: INSULIN HUMAN
  18. GABAPENTIN. [Concomitant]
     Active Substance: GABAPENTIN
  19. ENDOCET [Concomitant]
     Active Substance: ACETAMINOPHEN\OXYCODONE HYDROCHLORIDE
  20. CALCITRATE [Concomitant]
     Active Substance: CALCIUM CITRATE
  21. FLUOROURACIL. [Concomitant]
     Active Substance: FLUOROURACIL
  22. KETOCONAZOLE. [Concomitant]
     Active Substance: KETOCONAZOLE
  23. KIONEX [Concomitant]
     Active Substance: SODIUM POLYSTYRENE SULFONATE
  24. VITAMIN B12 [Concomitant]
     Active Substance: CYANOCOBALAMIN
  25. CYCLOBENZAPRINE HYDROCHLORIDE. [Concomitant]
     Active Substance: CYCLOBENZAPRINE HYDROCHLORIDE
  26. COLCRYS [Concomitant]
     Active Substance: COLCHICINE
  27. TRIAMCINOLONE ACETONIDE. [Concomitant]
     Active Substance: TRIAMCINOLONE ACETONIDE
  28. ALLOPURINOL. [Concomitant]
     Active Substance: ALLOPURINOL
  29. LOTRISONE [Concomitant]
     Active Substance: BETAMETHASONE DIPROPIONATE\CLOTRIMAZOLE
  30. LISINOPRIL. [Concomitant]
     Active Substance: LISINOPRIL
  31. FERAHEME [Concomitant]
     Active Substance: FERUMOXYTOL NON-STOICHIOMETRIC MAGNETITE
  32. AZOLE [Concomitant]
     Active Substance: ALBENDAZOLE
  33. PLAVIX [Concomitant]
     Active Substance: CLOPIDOGREL BISULFATE
  34. ACETYLSALICYLIC ACID [Concomitant]
     Active Substance: ASPIRIN
  35. ISOSORBIDE MONONITRATE. [Concomitant]
     Active Substance: ISOSORBIDE MONONITRATE
  36. BUMETANIDE. [Concomitant]
     Active Substance: BUMETANIDE
  37. NORTRIPTYLINE HYDROCHLORIDE. [Concomitant]
     Active Substance: NORTRIPTYLINE HYDROCHLORIDE
  38. VITAMIN D3 [Concomitant]
     Active Substance: CHOLECALCIFEROL

REACTIONS (8)
  - Vomiting [Unknown]
  - Blood glucose decreased [Unknown]
  - Bronchitis [Unknown]
  - Malaise [Unknown]
  - Constipation [Unknown]
  - Off label use [Unknown]
  - Infection [Unknown]
  - Drug dose omission [Unknown]

NARRATIVE: CASE EVENT DATE: 20160324
